FAERS Safety Report 9417154 (Version 1)
Quarter: 2013Q3

REPORT INFORMATION
  Report Type: Spontaneous
  Country: BR (occurrence: BR)
  Receive Date: 20130724
  Receipt Date: 20130724
  Transmission Date: 20140515
  Serious: Yes (Death)
  Sender: FDA-Public Use
  Company Number: BR-AMGEN-BRASP2012041512

PATIENT
  Age: 46 Year
  Sex: Male
  Weight: 70 kg

DRUGS (2)
  1. ENBREL [Suspect]
     Indication: ANKYLOSING SPONDYLITIS
     Dosage: 25 MG, TWICE WEEKLY
     Route: 058
     Dates: start: 201010
  2. ENBREL [Suspect]
     Dosage: UNK

REACTIONS (2)
  - Death [Fatal]
  - Application site pain [Unknown]
